FAERS Safety Report 4599581-7 (Version None)
Quarter: 2005Q1

REPORT INFORMATION
  Report Type: 
  Country: None (occurrence: None)
  Receive Date: 20050127
  Receipt Date: 20041018
  Transmission Date: 20050727
  Serious: No
  Sender: FDA-Public Use
  Company Number: USA041081454

PATIENT
  Age: 35 Year
  Sex: Female

DRUGS (3)
  1. STRATTERA [Suspect]
     Indication: ATTENTION DEFICIT/HYPERACTIVITY DISORDER
     Dosage: 18 MG/1 DAY
     Dates: start: 20041018
  2. LAMOTRIGINE [Concomitant]
  3. RISPERDAL [Concomitant]

REACTIONS (3)
  - HEART RATE INCREASED [None]
  - HYPERHIDROSIS [None]
  - PANIC REACTION [None]
